FAERS Safety Report 19884626 (Version 1)
Quarter: 2021Q3

REPORT INFORMATION
  Report Type: Spontaneous
  Country: FR (occurrence: FR)
  Receive Date: 20210927
  Receipt Date: 20210927
  Transmission Date: 20211014
  Serious: Yes (Hospitalization, Other)
  Sender: FDA-Public Use
  Company Number: FR-AUROBINDO-AUR-APL-2021-040088

PATIENT
  Age: 70 Year
  Sex: Male
  Weight: 124 kg

DRUGS (13)
  1. THIAMINE HYDROCHLORIDE. [Concomitant]
     Active Substance: THIAMINE HYDROCHLORIDE
     Indication: PRODUCT USED FOR UNKNOWN INDICATION
     Dosage: 250 MILLIGRAM, ONCE A DAY
     Route: 048
     Dates: end: 202108
  2. PYRIDOXINE HYDROCHLORIDE. [Concomitant]
     Active Substance: PYRIDOXINE HYDROCHLORIDE
     Indication: PRODUCT USED FOR UNKNOWN INDICATION
     Route: 048
     Dates: end: 202108
  3. DIFFU K [Concomitant]
     Active Substance: POTASSIUM CHLORIDE
     Indication: PRODUCT USED FOR UNKNOWN INDICATION
     Dosage: 1.2 GRAM, ONCE A DAY
     Route: 048
     Dates: end: 20210819
  4. GENTAMICINE [Suspect]
     Active Substance: GENTAMICIN
     Indication: ANTIBIOTIC THERAPY
     Dosage: 372 MILLIGRAM, ONCE A DAY
     Route: 042
     Dates: start: 20210802, end: 20210805
  5. ECONAZOLE. [Concomitant]
     Active Substance: ECONAZOLE NITRATE
     Indication: PRODUCT USED FOR UNKNOWN INDICATION
     Dosage: 2 DOSAGE FORM, ONCE A DAY
     Route: 003
     Dates: end: 20210819
  6. PARACETAMOL [Concomitant]
     Active Substance: ACETAMINOPHEN
     Indication: PRODUCT USED FOR UNKNOWN INDICATION
     Dosage: 1 DOSAGE FORM, AS NECESSARY (1)
     Route: 048
     Dates: end: 20210819
  7. FUROSEMIDE. [Concomitant]
     Active Substance: FUROSEMIDE
     Indication: PRODUCT USED FOR UNKNOWN INDICATION
     Dosage: 120 MILLIGRAM, ONCE A DAY
     Route: 042
     Dates: start: 20210804, end: 20210809
  8. RIFAMPICINE [Suspect]
     Active Substance: RIFAMPIN
     Indication: STAPHYLOCOCCAL SEPSIS
     Dosage: 1.2 GRAM, ONCE A DAY
     Route: 042
     Dates: start: 20210802, end: 20210809
  9. VANCOMYCINE [Suspect]
     Active Substance: VANCOMYCIN
     Indication: ANTIBIOTIC THERAPY
     Dosage: 4 GRAM, ONCE A DAY
     Route: 042
     Dates: start: 20210802, end: 20210810
  10. ALLOPURINOL. [Concomitant]
     Active Substance: ALLOPURINOL
     Indication: PRODUCT USED FOR UNKNOWN INDICATION
     Dosage: 200 MILLIGRAM, ONCE A DAY
     Route: 048
     Dates: end: 20210819
  11. METRONIDAZOLE. [Suspect]
     Active Substance: METRONIDAZOLE
     Indication: STAPHYLOCOCCAL SEPSIS
     Dosage: 1.5 GRAM, ONCE A DAY
     Route: 048
     Dates: start: 20210805, end: 20210811
  12. CLOPIDOGREL HYDROCHLORIDE [Concomitant]
     Active Substance: CLOPIDOGREL HYDROCHLORIDE
     Indication: PRODUCT USED FOR UNKNOWN INDICATION
     Dosage: 150 MILLIGRAM, ONCE A DAY
     Route: 048
     Dates: end: 20210819
  13. ATORVASTATINE [Concomitant]
     Active Substance: ATORVASTATIN
     Indication: PRODUCT USED FOR UNKNOWN INDICATION
     Route: 048
     Dates: end: 20210819

REACTIONS (1)
  - Renal failure [Not Recovered/Not Resolved]

NARRATIVE: CASE EVENT DATE: 20210807
